FAERS Safety Report 17407332 (Version 1)
Quarter: 2020Q1

REPORT INFORMATION
  Report Type: Spontaneous
  Country: US (occurrence: US)
  Receive Date: 20200128
  Receipt Date: 20200128
  Transmission Date: 20200409
  Serious: No
  Sender: FDA-Public Use
  Company Number: None

PATIENT
  Age: 72 Year
  Sex: Male

DRUGS (2)
  1. FUROSEMIDE (FUROSEMIDE 20MG TAB) [Suspect]
     Active Substance: FUROSEMIDE
     Indication: CARDIAC FAILURE CONGESTIVE
     Route: 048
     Dates: start: 20140820, end: 20200107
  2. TAMSULOSIN (TAMSULOSIN HCL 0.4MG CAP) [Suspect]
     Active Substance: TAMSULOSIN
     Indication: BENIGN PROSTATIC HYPERPLASIA
     Route: 048
     Dates: start: 20180824, end: 20200107

REACTIONS (3)
  - Dehydration [None]
  - Orthostatic hypotension [None]
  - Autonomic nervous system imbalance [None]

NARRATIVE: CASE EVENT DATE: 20200105
